FAERS Safety Report 7097090-7 (Version None)
Quarter: 2010Q4

REPORT INFORMATION
  Report Type: 
  Country: None (occurrence: None)
  Receive Date: 20101111
  Receipt Date: 20101108
  Transmission Date: 20110411
  Serious: No
  Sender: FDA-Public Use
  Company Number: US-TEVA-254728USA

PATIENT
  Age: 60 Year
  Sex: Female
  Weight: 43.13 kg

DRUGS (1)
  1. ALBUTEROL SULFATE AUTOHALER [Suspect]
     Indication: CHRONIC OBSTRUCTIVE PULMONARY DISEASE
     Dosage: 2 PUFFS UP TO EVERY 3 HOURS
     Route: 055
     Dates: start: 20101101, end: 20101107

REACTIONS (2)
  - HEADACHE [None]
  - TREMOR [None]
